FAERS Safety Report 5600307-6 (Version None)
Quarter: 2007Q4

REPORT INFORMATION
  Report Type: 
  Country: None (occurrence: None)
  Receive Date: 20071226
  Receipt Date: 20070802
  Transmission Date: 20080405
  Serious: Yes (Other)
  Sender: FDA-Public Use
  Company Number: 233522

PATIENT
  Age: 67 Year
  Sex: Male
  Weight: 79.8 kg

DRUGS (1)
  1. RAPTIVA [Suspect]
     Indication: PSORIASIS
     Dosage: 50 MG, 1/WEEK, SUBCUTANEOUS
     Route: 058
     Dates: start: 20040601

REACTIONS (1)
  - LYMPHOMA [None]
